FAERS Safety Report 24535685 (Version 2)
Quarter: 2024Q4

REPORT INFORMATION
  Report Type: Report from Study
  Country: US (occurrence: US)
  Receive Date: 20241022
  Receipt Date: 20241104
  Transmission Date: 20250114
  Serious: No
  Sender: SANDOZ
  Company Number: US-SANDOZ-SDZ2024US084584

PATIENT
  Age: 12 Year
  Sex: Female

DRUGS (4)
  1. OMNITROPE [Suspect]
     Active Substance: SOMATROPIN
     Indication: Short stature
     Dosage: 0.3 ML, QD
     Route: 058
     Dates: start: 20240928
  2. OMNITROPE [Suspect]
     Active Substance: SOMATROPIN
     Indication: Short stature
     Dosage: 0.3 ML, QD
     Route: 058
     Dates: start: 20240928
  3. OMNITROPE [Suspect]
     Active Substance: SOMATROPIN
     Dosage: VIAL AND SYRINGE METHOD 15 IU DAILY
     Route: 058
  4. OMNITROPE [Suspect]
     Active Substance: SOMATROPIN
     Dosage: VIAL AND SYRINGE METHOD 15 IU DAILY
     Route: 058

REACTIONS (2)
  - Injection site bruising [Not Recovered/Not Resolved]
  - Headache [Recovered/Resolved]

NARRATIVE: CASE EVENT DATE: 20240928
